FAERS Safety Report 24055844 (Version 2)
Quarter: 2024Q3

REPORT INFORMATION
  Report Type: Spontaneous
  Country: RS (occurrence: RS)
  Receive Date: 20240705
  Receipt Date: 20240712
  Transmission Date: 20241017
  Serious: Yes (Death, Hospitalization, Other)
  Sender: DAIICHI
  Company Number: RS-MENARINI-RS-MEN-102771

PATIENT
  Age: 87 Year
  Sex: Female

DRUGS (1)
  1. EDOXABAN TOSYLATE [Suspect]
     Active Substance: EDOXABAN TOSYLATE
     Indication: Cerebrovascular accident prophylaxis
     Dosage: 30 MG, QD
     Route: 048
     Dates: start: 20240415, end: 20240515

REACTIONS (3)
  - Metastases to gastrointestinal tract [Fatal]
  - Melaena [Recovered/Resolved with Sequelae]
  - Haematemesis [Recovered/Resolved with Sequelae]

NARRATIVE: CASE EVENT DATE: 20240515
